FAERS Safety Report 25509085 (Version 1)
Quarter: 2025Q3

REPORT INFORMATION
  Report Type: Spontaneous
  Country: US (occurrence: US)
  Receive Date: 20250703
  Receipt Date: 20250703
  Transmission Date: 20251021
  Serious: Yes (Other)
  Sender: AMGEN
  Company Number: US-AMGEN-USASP2025124301

PATIENT
  Age: 79 Year
  Sex: Male

DRUGS (5)
  1. RITUXIMAB [Suspect]
     Active Substance: RITUXIMAB
     Indication: Glomerulonephritis rapidly progressive
     Dosage: 1000 MILLIGRAM, Q2WK
     Route: 065
  2. RITUXIMAB [Suspect]
     Active Substance: RITUXIMAB
     Dosage: 1000 MILLIGRAM, Q2WK
     Route: 065
     Dates: start: 202404
  3. PREDNISONE [Suspect]
     Active Substance: PREDNISONE
     Indication: Anti-neutrophil cytoplasmic antibody positive vasculitis
     Dosage: 60 MILLIGRAM, QD TAPERED PER THE PEXIVAS PROTOCOL
     Route: 065
     Dates: end: 2024
  4. NINTEDANIB [Concomitant]
     Active Substance: NINTEDANIB
     Route: 065
  5. METHYLPREDNISOLONE [Concomitant]
     Active Substance: METHYLPREDNISOLONE
     Route: 040

REACTIONS (3)
  - Glomerulonephritis rapidly progressive [Unknown]
  - Off label use [Unknown]
  - Drug effective for unapproved indication [Unknown]
